FAERS Safety Report 19900298 (Version 2)
Quarter: 2021Q4

REPORT INFORMATION
  Report Type: Report from Study
  Country: US (occurrence: US)
  Receive Date: 20210929
  Receipt Date: 20211013
  Transmission Date: 20220303
  Serious: Yes (Hospitalization)
  Sender: FDA-Public Use
  Company Number: US-PFIZER INC-202101236228

PATIENT
  Age: 24 Year
  Sex: Female
  Weight: 67.1 kg

DRUGS (12)
  1. CYTARABINE [Suspect]
     Active Substance: CYTARABINE
     Indication: B precursor type acute leukaemia
     Dosage: 70 MG, CYCLIC
     Route: 037
     Dates: start: 20210421
  2. CYTARABINE [Suspect]
     Active Substance: CYTARABINE
     Dosage: 75 MG/M2, ON DAYS 1-4, 8-11 (TOTAL DOSE ADMINISTERED THIS COURSE: 960 MG)
     Route: 058
     Dates: start: 20210823, end: 20210902
  3. VINCRISTINE SULFATE [Suspect]
     Active Substance: VINCRISTINE SULFATE
     Indication: B precursor type acute leukaemia
     Dosage: 1.5 MG/M2, CYCLIC
     Route: 042
     Dates: start: 20210421
  4. VINCRISTINE SULFATE [Suspect]
     Active Substance: VINCRISTINE SULFATE
     Dosage: 1.5 MG/M2 ON DAYS 15, 22 (TOTAL DOSE ADMINISTERED THIS COURSE: 4 MG)
     Route: 042
     Dates: start: 20210907, end: 20210913
  5. METHOTREXATE SODIUM [Suspect]
     Active Substance: METHOTREXATE SODIUM
     Indication: B precursor type acute leukaemia
     Dosage: 15 MG, DAYS 1, 8, 15, AND 22 (TOTAL DOSE ADMINISTERED THIS COURSE 60 MG)
     Route: 037
     Dates: start: 20210820, end: 20210913
  6. INOTUZUMAB OZOGAMICIN [Suspect]
     Active Substance: INOTUZUMAB OZOGAMICIN
     Indication: B precursor type acute leukaemia
     Dosage: 0.5 MG/M2, DAY 1, 8 AND 15 OF A 28-DAY CYCLE
     Route: 042
     Dates: start: 20210607, end: 20210726
  7. RUXIENCE [Suspect]
     Active Substance: RITUXIMAB-PVVR
     Indication: B precursor type acute leukaemia
     Dosage: 375 MG/M2, CYCLIC ((TOTAL DOSE ADMINISTERED THIS COURSE 1300 MG)
     Route: 042
     Dates: start: 20210820, end: 20210830
  8. CYCLOPHOSPHAMIDE [Suspect]
     Active Substance: CYCLOPHOSPHAMIDE
     Indication: B precursor type acute leukaemia
     Dosage: 1000 MG/M2 (1730 MG)  CYCLIC (DAY 1)
     Route: 042
     Dates: start: 20210820, end: 20210820
  9. MERCAPTOPURINE [Suspect]
     Active Substance: MERCAPTOPURINE
     Indication: B precursor type acute leukaemia
     Dosage: 60 MG/M2, DAYS 1-14 (05SEP2021 (TOTAL DOSE ADMINISTERED THIS COURSE 1400 MG)
     Route: 048
     Dates: start: 20210823, end: 20210905
  10. ONCASPAR [Suspect]
     Active Substance: PEGASPARGASE
     Indication: B precursor type acute leukaemia
     Dosage: 3457.5 IU (2000 IU/M2),  DAY 15, CYCLIC
     Route: 042
     Dates: start: 20210907, end: 20210907
  11. DEXAMETHASONE [Suspect]
     Active Substance: DEXAMETHASONE
     Indication: B precursor type acute leukaemia
     Dosage: 5 MG/M2, CYCLIC
     Route: 048
     Dates: start: 20210421
  12. DAUNORUBICIN [Suspect]
     Active Substance: DAUNORUBICIN
     Indication: B precursor type acute leukaemia
     Dosage: 25 MG/M2, CYCLIC
     Route: 042
     Dates: start: 20210421

REACTIONS (1)
  - Febrile neutropenia [Recovered/Resolved]

NARRATIVE: CASE EVENT DATE: 20210919
